FAERS Safety Report 6315389-6 (Version None)
Quarter: 2009Q3

REPORT INFORMATION
  Report Type: 
  Country: None (occurrence: None)
  Receive Date: 20090819
  Receipt Date: 20090815
  Transmission Date: 20100115
  Serious: Yes (Other)
  Sender: FDA-Public Use
  Company Number: US-PFIZER INC-2009235683

PATIENT
  Age: 60 Year
  Sex: Female

DRUGS (2)
  1. FLAGYL [Suspect]
     Dates: start: 20090101, end: 20090101
  2. CIPROFLOXACIN [Interacting]
     Dates: start: 20090101, end: 20090101

REACTIONS (6)
  - CANDIDIASIS [None]
  - CLOSTRIDIUM DIFFICILE COLITIS [None]
  - DIARRHOEA [None]
  - DRUG INTERACTION [None]
  - PYREXIA [None]
  - WEIGHT DECREASED [None]
